FAERS Safety Report 7010364-0 (Version None)
Quarter: 2010Q3

REPORT INFORMATION
  Report Type: 
  Country: None (occurrence: None)
  Receive Date: 20100923
  Receipt Date: 20100914
  Transmission Date: 20110219
  Serious: Yes (Other)
  Sender: FDA-Public Use
  Company Number: US-PFIZER INC-2010116135

PATIENT
  Age: 22 Year
  Sex: Male

DRUGS (4)
  1. ETHOSUXIMIDE [Suspect]
  2. PHENOBARBITAL [Suspect]
  3. CARBAMAZEPINE [Suspect]
  4. VALPROIC ACID [Suspect]

REACTIONS (1)
  - HEPATIC ADENOMA [None]
